FAERS Safety Report 7248131-5 (Version None)
Quarter: 2011Q1

REPORT INFORMATION
  Report Type: 
  Country: None (occurrence: None)
  Receive Date: 20110127
  Receipt Date: 20110121
  Transmission Date: 20110831
  Serious: Yes (Life-Threatening)
  Sender: FDA-Public Use
  Company Number: DK-TEVA-236928ISR

PATIENT
  Sex: Female

DRUGS (4)
  1. ESCITALOPRAM OXALATE [Interacting]
     Indication: DEPRESSION
     Dates: end: 20100525
  2. BENDROFLUMETHIAZIDE AND POTASSIUM [Interacting]
     Indication: HYPERTENSION
     Route: 048
     Dates: start: 20070101, end: 20100525
  3. MIRTAZAPINE [Suspect]
     Indication: DEPRESSION
     Route: 048
     Dates: end: 20100525
  4. QUETIAPINE [Concomitant]
     Indication: DEPRESSION
     Route: 048
     Dates: end: 20100525

REACTIONS (2)
  - BLOOD SODIUM DECREASED [None]
  - DRUG INTERACTION [None]
